FAERS Safety Report 4624915-4 (Version None)
Quarter: 2005Q2

REPORT INFORMATION
  Report Type: 
  Country: None (occurrence: None)
  Receive Date: 20050325
  Receipt Date: 20050110
  Transmission Date: 20051028
  Serious: No
  Sender: FDA-Public Use
  Company Number: USA050187958

PATIENT
  Age: 51 Year
  Sex: Female

DRUGS (4)
  1. FORTEO [Suspect]
     Indication: SPINAL COMPRESSION FRACTURE
     Dosage: 20 UG/1 DAY
     Dates: start: 20040101
  2. WATER PILLS [Concomitant]
  3. ENBREL [Concomitant]
  4. VITAMIN B12 FOR INJECTION (CYANOCOBALAMIN) [Concomitant]

REACTIONS (13)
  - ABSCESS ORAL [None]
  - DIZZINESS [None]
  - DYSGEUSIA [None]
  - LOWER RESPIRATORY TRACT INFECTION [None]
  - NASOPHARYNGITIS [None]
  - NON-CARDIAC CHEST PAIN [None]
  - PAIN IN EXTREMITY [None]
  - PNEUMONIA [None]
  - PULMONARY OEDEMA [None]
  - SINUSITIS [None]
  - TOOTH ABSCESS [None]
  - URINARY TRACT INFECTION [None]
  - WHEEZING [None]
